FAERS Safety Report 7102570-1 (Version None)
Quarter: 2010Q4

REPORT INFORMATION
  Report Type: 
  Country: None (occurrence: None)
  Receive Date: 20101115
  Receipt Date: 20101108
  Transmission Date: 20110411
  Serious: Yes (Hospitalization, Disabling)
  Sender: FDA-Public Use
  Company Number: A0768722A

PATIENT
  Age: 44 Year
  Sex: Male
  Weight: 120.5 kg

DRUGS (8)
  1. AVANDIA [Suspect]
     Dosage: 8MG PER DAY
     Route: 048
     Dates: start: 20001128, end: 20060417
  2. AVANDARYL [Suspect]
     Route: 048
     Dates: start: 20060526, end: 20060918
  3. METFORMIN HCL [Concomitant]
  4. GLYBURIDE [Concomitant]
  5. BYETTA [Concomitant]
     Dates: start: 20060215
  6. LIPITOR [Concomitant]
  7. POTASSIUM CHLORIDE [Concomitant]
  8. ZESTRIL [Concomitant]

REACTIONS (3)
  - ACUTE CORONARY SYNDROME [None]
  - ACUTE MYOCARDIAL INFARCTION [None]
  - ARRHYTHMIA [None]
